FAERS Safety Report 20105007 (Version 2)
Quarter: 2022Q1

REPORT INFORMATION
  Report Type: Report from Study
  Country: US (occurrence: US)
  Receive Date: 20211124
  Receipt Date: 20220125
  Transmission Date: 20220423
  Serious: Yes (Other)
  Sender: FDA-Public Use
  Company Number: US-ABBVIE-21K-163-4167543-00

PATIENT
  Sex: Female

DRUGS (3)
  1. HUMIRA [Suspect]
     Active Substance: ADALIMUMAB
     Indication: Crohn^s disease
     Dosage: DAY 1
     Route: 058
     Dates: start: 20211020, end: 20211020
  2. HUMIRA [Suspect]
     Active Substance: ADALIMUMAB
     Dosage: DAY 15
     Route: 058
     Dates: start: 20211103, end: 20211103
  3. HUMIRA [Suspect]
     Active Substance: ADALIMUMAB
     Route: 058
     Dates: start: 20211117

REACTIONS (18)
  - Gastrointestinal obstruction [Not Recovered/Not Resolved]
  - Dermatitis diaper [Not Recovered/Not Resolved]
  - Rectal discharge [Not Recovered/Not Resolved]
  - Gastrointestinal sounds abnormal [Recovering/Resolving]
  - Feeling hot [Not Recovered/Not Resolved]
  - Constipation [Not Recovered/Not Resolved]
  - Fatigue [Unknown]
  - Respiratory tract congestion [Recovering/Resolving]
  - Rhinorrhoea [Unknown]
  - Stomatitis [Recovered/Resolved]
  - Depressed mood [Unknown]
  - Abdominal distension [Recovering/Resolving]
  - SARS-CoV-2 test positive [Recovered/Resolved]
  - Anxiety [Recovering/Resolving]
  - Nausea [Not Recovered/Not Resolved]
  - Abdominal pain [Not Recovered/Not Resolved]
  - Arthralgia [Unknown]
  - Diarrhoea [Unknown]

NARRATIVE: CASE EVENT DATE: 20210101
